FAERS Safety Report 7659712-9 (Version None)
Quarter: 2011Q3

REPORT INFORMATION
  Report Type: 
  Country: None (occurrence: None)
  Receive Date: 20110802
  Receipt Date: 20110721
  Transmission Date: 20111222
  Serious: Yes (Hospitalization, Other)
  Sender: FDA-Public Use
  Company Number: 2010SP063276

PATIENT
  Age: 34 Year
  Sex: Female
  Weight: 125.5557 kg

DRUGS (4)
  1. NUVARING [Suspect]
     Indication: CONTRACEPTION
     Dates: start: 20060227, end: 20061206
  2. PAROXETINE HCL [Concomitant]
  3. IBUPROFEN [Concomitant]
  4. AMBIEN [Concomitant]

REACTIONS (29)
  - MULTIPLE INJURIES [None]
  - FACTOR V LEIDEN MUTATION [None]
  - BRONCHITIS [None]
  - URINARY TRACT INFECTION [None]
  - ATELECTASIS [None]
  - URINARY RETENTION [None]
  - ROTATOR CUFF SYNDROME [None]
  - COCCYDYNIA [None]
  - PULMONARY EMBOLISM [None]
  - HYPERCOAGULATION [None]
  - PULMONARY FIBROSIS [None]
  - RIB FRACTURE [None]
  - ECCHYMOSIS [None]
  - CONTUSION [None]
  - CONSTIPATION [None]
  - MUSCULOSKELETAL PAIN [None]
  - GROIN PAIN [None]
  - PULMONARY INFARCTION [None]
  - BURSITIS [None]
  - EMOTIONAL DISORDER [None]
  - MENTAL DISORDER [None]
  - JOINT INJURY [None]
  - THROMBOSIS [None]
  - HEPATIC STEATOSIS [None]
  - TENDONITIS [None]
  - HYPERSENSITIVITY [None]
  - HEAD INJURY [None]
  - ARTHRALGIA [None]
  - FALL [None]
